FAERS Safety Report 7991680-2 (Version None)
Quarter: 2011Q4

REPORT INFORMATION
  Report Type: 
  Country: None (occurrence: None)
  Receive Date: 20111219
  Receipt Date: 20111207
  Transmission Date: 20120403
  Serious: Yes (Other)
  Sender: FDA-Public Use
  Company Number: PHHY2011US30059

PATIENT
  Sex: Male
  Weight: 83.9 kg

DRUGS (18)
  1. CELEBREX [Concomitant]
  2. TRIAMTERENE [Concomitant]
  3. THEOPHYLLINE [Concomitant]
  4. SIMVASTATIN [Concomitant]
  5. CLONIDINE HCL [Concomitant]
  6. GLEEVEC [Suspect]
     Dosage: 400 MG, QD
     Route: 048
     Dates: start: 20070101
  7. ALLOPURINOL [Concomitant]
  8. LIPITOR [Concomitant]
  9. GLEEVEC [Suspect]
     Indication: CHRONIC MYELOID LEUKAEMIA
     Dosage: 400 MG, QD
     Route: 048
     Dates: start: 20020724
  10. GLEEVEC [Suspect]
     Dosage: 400 MG, DAILY
     Route: 048
     Dates: start: 20080401
  11. GLEEVEC [Suspect]
     Dosage: 400 MG, DAILY
     Route: 048
     Dates: start: 20110301
  12. METOPROLOL [Concomitant]
  13. FLOVENT [Concomitant]
  14. CLONIDINE [Concomitant]
  15. ASPIRIN [Concomitant]
  16. TAMSULOSIN HYDROCHLORIDE [Concomitant]
  17. LISINOPRIL [Concomitant]
  18. AMLODIPINE [Concomitant]

REACTIONS (13)
  - HAEMATURIA [None]
  - OEDEMA [None]
  - MYALGIA [None]
  - OEDEMA PERIPHERAL [None]
  - NASAL CONGESTION [None]
  - EYE DISORDER [None]
  - MUSCLE SPASMS [None]
  - JOINT SWELLING [None]
  - NAUSEA [None]
  - BONE PAIN [None]
  - CEREBROVASCULAR ACCIDENT [None]
  - NASOPHARYNGITIS [None]
  - PAIN [None]
